FAERS Safety Report 11841214 (Version 1)
Quarter: 2015Q4

REPORT INFORMATION
  Report Type: Spontaneous
  Country: US (occurrence: US)
  Receive Date: 20151216
  Receipt Date: 20151216
  Transmission Date: 20160305
  Serious: Yes (Hospitalization)
  Sender: FDA-Public Use
  Company Number: US-TORRENT-00001068

PATIENT
  Sex: Male

DRUGS (2)
  1. ARIPIPRAZOLE TABLETS [Suspect]
     Active Substance: ARIPIPRAZOLE
     Indication: PRODUCT USED FOR UNKNOWN INDICATION
     Dosage: 2.5 MG DAILY FOR ONE WEEK?5 MG DAILY FOR ABOUT 4 WEEKS?2.5 MG FOR A WEEK
  2. NORPRAMIN [Concomitant]
     Active Substance: DESIPRAMINE HYDROCHLORIDE
     Indication: DEPRESSION

REACTIONS (10)
  - Drug withdrawal syndrome [Recovering/Resolving]
  - Depression [Recovering/Resolving]
  - Tremor [None]
  - Thinking abnormal [None]
  - Restlessness [Recovering/Resolving]
  - Disturbance in attention [None]
  - Mental disorder [None]
  - Blood creatine phosphokinase increased [Recovered/Resolved]
  - Neuralgia [Recovering/Resolving]
  - Neurological symptom [None]
